FAERS Safety Report 20189907 (Version 1)
Quarter: 2021Q4

REPORT INFORMATION
  Report Type: Report from Study
  Country: BE (occurrence: BE)
  Receive Date: 20211215
  Receipt Date: 20211215
  Transmission Date: 20220303
  Serious: Yes (Hospitalization)
  Sender: FDA-Public Use
  Company Number: BE-ABBVIE-21P-013-4152849-00

PATIENT
  Age: 59 Year
  Sex: Male
  Weight: 72.2 kg

DRUGS (17)
  1. VENETOCLAX [Suspect]
     Active Substance: VENETOCLAX
     Indication: Myelodysplastic syndrome
     Route: 048
     Dates: start: 20210712
  2. AZACITIDINE [Suspect]
     Active Substance: AZACITIDINE
     Indication: Myelodysplastic syndrome
     Dosage: 75MG/M2 (7 DAYS ON, 21 DAYS OFF)
     Route: 058
     Dates: start: 20210712
  3. MOVICOL [Concomitant]
     Active Substance: POLYETHYLENE GLYCOL 3350\POTASSIUM CHLORIDE\SODIUM BICARBONATE\SODIUM CHLORIDE
     Indication: Constipation
     Route: 048
     Dates: start: 20210712
  4. SODIUM PICOSULFATE [Concomitant]
     Active Substance: SODIUM PICOSULFATE
     Indication: Constipation
     Route: 048
     Dates: start: 20210719
  5. LEVOCETIRIZINE [Concomitant]
     Active Substance: LEVOCETIRIZINE
     Indication: Rash pruritic
     Route: 048
     Dates: start: 20210726
  6. ACYCLOVIR [Concomitant]
     Active Substance: ACYCLOVIR
     Indication: Antiviral prophylaxis
     Route: 048
     Dates: start: 20210809, end: 20210905
  7. OMEPRAZOLE [Concomitant]
     Active Substance: OMEPRAZOLE
     Indication: Prophylaxis against gastrointestinal ulcer
     Route: 048
     Dates: start: 20210712
  8. OENOTHERA OIL [Concomitant]
     Indication: Injection site irritation
     Dosage: DOSE: 1 APPLICATION ONCE DAILY
     Route: 061
     Dates: start: 20210809
  9. METHYLPREDNISOLONE INFILTRATIONS [Concomitant]
     Indication: Intervertebral disc protrusion
     Route: 014
     Dates: start: 202010
  10. ACYCLOVIR [Concomitant]
     Active Substance: ACYCLOVIR
     Indication: Antiviral prophylaxis
     Route: 048
     Dates: start: 20210906
  11. EXJADE [Concomitant]
     Active Substance: DEFERASIROX
     Indication: Serum ferritin increased
     Route: 048
     Dates: start: 20210706, end: 20210905
  12. EXJADE [Concomitant]
     Active Substance: DEFERASIROX
     Route: 048
     Dates: start: 20210906
  13. INUVAIR NEXTHALER [Concomitant]
     Indication: Cough
     Route: 055
     Dates: start: 20210707
  14. TRADONAL ODIS [Concomitant]
     Indication: Intervertebral disc protrusion
     Route: 048
     Dates: start: 20210702
  15. ALIZAPRIDE HYDROCHLORIDE [Concomitant]
     Active Substance: ALIZAPRIDE HYDROCHLORIDE
     Indication: Nausea
     Route: 048
     Dates: start: 20210927
  16. ALIZAPRIDE HYDROCHLORIDE [Concomitant]
     Active Substance: ALIZAPRIDE HYDROCHLORIDE
     Route: 030
     Dates: start: 20211018, end: 20211018
  17. ONDANSETRON [Concomitant]
     Active Substance: ONDANSETRON
     Indication: Prophylaxis of nausea and vomiting
     Dosage: 8MG FREQUENCY (ON VIDAZA ADMINISTRATION DAYS)
     Route: 048
     Dates: start: 20210712

REACTIONS (1)
  - Escherichia infection [Recovered/Resolved]

NARRATIVE: CASE EVENT DATE: 20211107
